FAERS Safety Report 7382853-0 (Version None)
Quarter: 2011Q1

REPORT INFORMATION
  Report Type: 
  Country: None (occurrence: None)
  Receive Date: 20110330
  Receipt Date: 20110317
  Transmission Date: 20110831
  Serious: Yes (Hospitalization, Other)
  Sender: FDA-Public Use
  Company Number: JP-CELGENEUS-087-21880-10121754

PATIENT
  Sex: Male

DRUGS (14)
  1. REVLIMID [Suspect]
     Dosage: 10 MILLIGRAM
     Route: 048
     Dates: start: 20101014, end: 20101017
  2. LENADEX [Suspect]
     Indication: MULTIPLE MYELOMA
     Dosage: 40 MILLIGRAM
     Route: 048
     Dates: start: 20100825, end: 20100825
  3. PANTOSIN [Concomitant]
     Dosage: 3 GRAM
     Route: 048
  4. DAIPHEN [Concomitant]
     Indication: PROPHYLAXIS
     Dosage: 1T
     Route: 048
  5. LENADEX [Suspect]
     Dosage: 8 MILLIGRAM
     Route: 048
     Dates: start: 20101014, end: 20101017
  6. ASPIRIN [Concomitant]
     Dosage: 100 MILLIGRAM
     Route: 048
     Dates: start: 20101014, end: 20101017
  7. BONALON [Concomitant]
     Dosage: 35 MILLIGRAM
     Route: 048
  8. ASPIRIN [Concomitant]
     Indication: PROPHYLAXIS
     Dosage: 100 MILLIGRAM
     Route: 048
     Dates: start: 20100825, end: 20100829
  9. PARIET [Concomitant]
     Dosage: 10 MILLIGRAM
     Route: 048
  10. AMLODIPINE [Concomitant]
     Indication: HYPERTENSION
     Dosage: 2.5 MILLIGRAM
     Route: 048
  11. REVLIMID [Suspect]
     Indication: MULTIPLE MYELOMA
     Dosage: 25 MILLIGRAM
     Route: 048
     Dates: start: 20100825, end: 20100829
  12. URSO 250 [Concomitant]
     Dosage: 300 MILLIGRAM
     Route: 048
  13. MAGNESIUM OXIDE [Concomitant]
     Dosage: 1.5 GRAM
     Route: 048
  14. VFEND [Concomitant]
     Dosage: 200 MILLIGRAM
     Route: 048

REACTIONS (3)
  - ILEUS [None]
  - CONSTIPATION [None]
  - PERITONEAL INFECTION [None]
